FAERS Safety Report 6329159-6 (Version None)
Quarter: 2009Q3

REPORT INFORMATION
  Report Type: 
  Country: None (occurrence: None)
  Receive Date: 20090826
  Receipt Date: 20090818
  Transmission Date: 20100115
  Serious: Yes (Death, Hospitalization)
  Sender: FDA-Public Use
  Company Number: BR-ROCHE-651504

PATIENT
  Sex: Female
  Weight: 63 kg

DRUGS (3)
  1. BONIVA [Suspect]
     Indication: OSTEOPOROSIS
     Route: 048
     Dates: start: 20060101, end: 20090528
  2. ANCORON [Concomitant]
     Indication: CARDIAC DISORDER
     Route: 048
  3. SELOZOK [Concomitant]
     Indication: CARDIAC DISORDER
     Route: 048

REACTIONS (3)
  - CARDIAC DISORDER [None]
  - GASTRITIS [None]
  - PNEUMONIA [None]
